FAERS Safety Report 4605872-3 (Version None)
Quarter: 2005Q2

REPORT INFORMATION
  Report Type: 
  Country: None (occurrence: None)
  Receive Date: 20050303
  Receipt Date: 20050127
  Transmission Date: 20051028
  Serious: No
  Sender: FDA-Public Use
  Company Number: 200510130BWH

PATIENT
  Age: 45 Year
  Sex: Male

DRUGS (5)
  1. LEVITRA [Suspect]
     Indication: ERECTILE DYSFUNCTION
     Dosage: 20 MG, TOTAL DAILY, ORAL;  10 MG, TOTAL DAILY, ORAL;  20 MG, TOTAL DAILY, ORAL
     Route: 048
     Dates: start: 20050121
  2. LEVITRA [Suspect]
     Indication: ERECTILE DYSFUNCTION
     Dosage: 20 MG, TOTAL DAILY, ORAL;  10 MG, TOTAL DAILY, ORAL;  20 MG, TOTAL DAILY, ORAL
     Route: 048
     Dates: start: 20050122
  3. LEVITRA [Suspect]
     Indication: ERECTILE DYSFUNCTION
     Dosage: 20 MG, TOTAL DAILY, ORAL;  10 MG, TOTAL DAILY, ORAL;  20 MG, TOTAL DAILY, ORAL
     Route: 048
     Dates: start: 20050123
  4. ANAGEL [Concomitant]
  5. HIGH BLOOD PRESSURE MEDICATION [Concomitant]

REACTIONS (2)
  - ERECTILE DYSFUNCTION [None]
  - HEADACHE [None]
